FAERS Safety Report 8971201 (Version 3)
Quarter: 2014Q2

REPORT INFORMATION
  Report Type: Spontaneous
  Country: US (occurrence: US)
  Receive Date: 20121218
  Receipt Date: 20140422
  Transmission Date: 20141212
  Serious: Yes (Hospitalization)
  Sender: FDA-Public Use
  Company Number: US-BAYER-2012-130399

PATIENT
  Age: 37 Year
  Sex: Female

DRUGS (11)
  1. YAZ [Suspect]
  2. YASMIN [Suspect]
  3. OCELLA [Suspect]
  4. GIANVI [Suspect]
  5. ZIPRASIDONE [Concomitant]
     Dosage: 80 MG, UNK
     Dates: start: 20120426, end: 20120702
  6. HYDROXYZINE HCL [Concomitant]
     Dosage: 50 MG, UNK
     Dates: start: 20120426, end: 20120702
  7. PHENTERMINE [Concomitant]
     Dosage: 37.5 MG, UNK
     Dates: start: 20120616
  8. SERTRALINE [Concomitant]
     Dosage: 100 MG, UNK
     Dates: start: 20120702
  9. HALOPERIDOL [Concomitant]
     Dosage: 2 MG, UNK
     Dates: start: 20120702
  10. ANALGESICS [Concomitant]
  11. MIRENA [Concomitant]

REACTIONS (7)
  - Pulmonary embolism [None]
  - Deep vein thrombosis [None]
  - Thrombophlebitis superficial [None]
  - Emotional distress [None]
  - Pain [None]
  - Injury [None]
  - Pain [None]
